FAERS Safety Report 19054325 (Version 3)
Quarter: 2021Q2

REPORT INFORMATION
  Report Type: Spontaneous
  Country: CA (occurrence: CA)
  Receive Date: 20210325
  Receipt Date: 20210610
  Transmission Date: 20210717
  Serious: Yes (Other)
  Sender: FDA-Public Use
  Company Number: CA-B.I. PHARMACEUTICALS,INC./RIDGEFIELD-2021-BI-091500

PATIENT
  Age: 27 Year
  Sex: Female

DRUGS (2)
  1. JARDIANCE [Suspect]
     Active Substance: EMPAGLIFLOZIN
     Indication: TYPE 1 DIABETES MELLITUS
     Dosage: EMPAGLIFLOZIN 10MG ? HALF PILL
     Dates: start: 201912
  2. INSULIN [Concomitant]
     Active Substance: INSULIN NOS
     Indication: PRODUCT USED FOR UNKNOWN INDICATION

REACTIONS (4)
  - Product use in unapproved indication [Unknown]
  - Viral infection [Unknown]
  - Euglycaemic diabetic ketoacidosis [Recovered/Resolved]
  - Multiple sclerosis [Recovered/Resolved]

NARRATIVE: CASE EVENT DATE: 202001
